FAERS Safety Report 11795306 (Version 2)
Quarter: 2018Q2

REPORT INFORMATION
  Report Type: Report from Study
  Country: US (occurrence: US)
  Receive Date: 20151202
  Receipt Date: 20180627
  Transmission Date: 20180711
  Serious: Yes (Death, Other)
  Sender: FDA-Public Use
  Company Number: US-ACTELION-A-NJ2015-127724

PATIENT
  Age: 71 Year
  Sex: Female
  Weight: 95.24 kg

DRUGS (1)
  1. OPSUMIT [Suspect]
     Active Substance: MACITENTAN
     Indication: PULMONARY ARTERIAL HYPERTENSION
     Dosage: 10 MG, QD
     Route: 048
     Dates: start: 20140327

REACTIONS (3)
  - Death [Fatal]
  - Acute kidney injury [Unknown]
  - Renal function test abnormal [Unknown]
